FAERS Safety Report 5168567-6 (Version None)
Quarter: 2006Q4

REPORT INFORMATION
  Report Type: 
  Country: None (occurrence: None)
  Receive Date: 20061208
  Receipt Date: 20061130
  Transmission Date: 20070319
  Serious: Yes (Hospitalization, Other)
  Sender: FDA-Public Use
  Company Number: US-ABBOTT-06P-163-0352074-00

PATIENT
  Age: 10 Year
  Sex: Male

DRUGS (7)
  1. DEPAKOTE [Suspect]
     Indication: DRUG USE FOR UNKNOWN INDICATION
  2. SYNTHROID [Interacting]
     Indication: DRUG USE FOR UNKNOWN INDICATION
  3. LEXAPRO [Interacting]
     Indication: DRUG USE FOR UNKNOWN INDICATION
     Route: 048
  4. LITHIUM CARBONATE [Interacting]
     Indication: DRUG USE FOR UNKNOWN INDICATION
  5. CLONIDINE [Interacting]
     Indication: DRUG USE FOR UNKNOWN INDICATION
  6. METHYLPHENIDATE HCL [Interacting]
     Indication: DRUG USE FOR UNKNOWN INDICATION
  7. OXACARBAZINE (OXACARBAZINE) [Interacting]
     Indication: DRUG USE FOR UNKNOWN INDICATION

REACTIONS (19)
  - ABDOMINAL PAIN [None]
  - ATRIOVENTRICULAR BLOCK FIRST DEGREE [None]
  - CHEST PAIN [None]
  - DIARRHOEA [None]
  - DISORIENTATION [None]
  - DIZZINESS [None]
  - DRUG INTERACTION [None]
  - HYPERHIDROSIS [None]
  - HYPOTENSION [None]
  - HYPOTHYROIDISM [None]
  - ORAL INTAKE REDUCED [None]
  - PALLOR [None]
  - PALPITATIONS [None]
  - RHYTHM IDIOVENTRICULAR [None]
  - THERAPEUTIC AGENT TOXICITY [None]
  - VENTRICULAR EXTRASYSTOLES [None]
  - VENTRICULAR TACHYCARDIA [None]
  - VOMITING [None]
  - WHITE BLOOD CELL COUNT INCREASED [None]
